FAERS Safety Report 5642298-8 (Version None)
Quarter: 2008Q1

REPORT INFORMATION
  Report Type: 
  Country: None (occurrence: None)
  Receive Date: 20080227
  Receipt Date: 20080214
  Transmission Date: 20080703
  Serious: Yes (Death)
  Sender: FDA-Public Use
  Company Number: US-GENENTECH-256424

PATIENT
  Age: 65 Year
  Sex: Male

DRUGS (4)
  1. BEVACIZUMAB [Suspect]
     Indication: COLON CANCER
  2. LEUCOVORIN CALCIUM [Suspect]
     Indication: COLON CANCER
  3. FLUOROURACIL [Suspect]
     Indication: COLON CANCER
  4. OXALIPLATIN [Suspect]
     Indication: COLON CANCER

REACTIONS (1)
  - GASTROINTESTINAL NECROSIS [None]
